FAERS Safety Report 21017305 (Version 1)
Quarter: 2022Q2

REPORT INFORMATION
  Report Type: Spontaneous
  Country: US (occurrence: None)
  Receive Date: 20220627
  Receipt Date: 20220627
  Transmission Date: 20220721
  Serious: Yes (Disabling)
  Sender: FDA-Public Use
  Company Number: None

PATIENT
  Age: 55 Year
  Sex: Female
  Weight: 60.75 kg

DRUGS (1)
  1. SPRAVATO [Suspect]
     Active Substance: ESKETAMINE
     Indication: Depression
     Dosage: OTHER QUANTITY : 2 SPRAY(S);?OTHER FREQUENCY : 1-2 TIMES A WEEK;?OTHER ROUTE : INTO NOSTRIL;?
     Route: 050
     Dates: start: 20220331, end: 20220615

REACTIONS (1)
  - Essential tremor [None]

NARRATIVE: CASE EVENT DATE: 20220401
